FAERS Safety Report 25997661 (Version 2)
Quarter: 2025Q4

REPORT INFORMATION
  Report Type: Spontaneous
  Country: EU (occurrence: EU)
  Receive Date: 20251104
  Receipt Date: 20251112
  Transmission Date: 20260118
  Serious: Yes (Other)
  Sender: CELLTRION
  Company Number: EU-SAMSUNG BIOEPIS-SB-2025-34717

PATIENT

DRUGS (12)
  1. INFLIXIMAB [Suspect]
     Active Substance: INFLIXIMAB
     Indication: Immune-mediated enterocolitis
     Dosage: ONE DOSE OF 5 MG/KG
  2. INFLIXIMAB [Suspect]
     Active Substance: INFLIXIMAB
     Dosage: TWO WEEKS AFTER THE INITIAL INFLIXIMAB ADMINISTRATION
  3. REMICADE [Suspect]
     Active Substance: INFLIXIMAB
     Indication: Metastatic malignant melanoma
     Route: 041
  4. METHYLPREDNISOLONE [Suspect]
     Active Substance: METHYLPREDNISOLONE
     Indication: Immune-mediated enterocolitis
     Dosage: 2 MG/KG
     Route: 042
  5. PREDNISOLONE [Suspect]
     Active Substance: PREDNISOLONE
     Indication: Immune-mediated enterocolitis
     Dosage: 1 MG/KG TAPERED OVER 5 WEEKS
  6. PREDNISOLONE [Suspect]
     Active Substance: PREDNISOLONE
     Indication: Hepatotoxicity
     Dosage: TAPERING WAS INITIATED
  7. PREDNISOLONE [Suspect]
     Active Substance: PREDNISOLONE
     Dosage: 2 MG/KG TAPERED OVER 5 WEEKS
  8. PREDNISOLONE [Suspect]
     Active Substance: PREDNISOLONE
     Dosage: DOSE WAS LOWERED
  9. NIVOLUMAB [Concomitant]
     Active Substance: NIVOLUMAB
     Indication: Choroid melanoma
     Dosage: 1 MG/KG EVERY 3 WEEKS
     Dates: start: 202310
  10. NIVOLUMAB [Concomitant]
     Active Substance: NIVOLUMAB
     Indication: Metastases to liver
  11. IPILIMUMAB [Concomitant]
     Active Substance: IPILIMUMAB
     Indication: Choroid melanoma
     Dosage: 3 MG/KG EVERY 3 WEEKS
     Dates: start: 202310
  12. IPILIMUMAB [Concomitant]
     Active Substance: IPILIMUMAB
     Indication: Metastases to liver

REACTIONS (4)
  - Immune-mediated enterocolitis [Recovering/Resolving]
  - Diarrhoea [Unknown]
  - Drug ineffective for unapproved indication [Unknown]
  - Off label use [Unknown]
